FAERS Safety Report 5492922-8 (Version None)
Quarter: 2007Q4

REPORT INFORMATION
  Report Type: 
  Country: None (occurrence: None)
  Receive Date: 20071018
  Receipt Date: 20071005
  Transmission Date: 20080405
  Serious: Yes (Death, Hospitalization)
  Sender: FDA-Public Use
  Company Number: 02100-JPN-07-0511

PATIENT
  Age: 75 Year
  Sex: Male

DRUGS (13)
  1. CILOSTAZOL [Suspect]
     Indication: CEREBRAL INFARCTION
     Dosage: 200 MG ORAL
     Route: 048
     Dates: start: 20040608, end: 20070501
  2. AMLODIPINE BESYLATE [Concomitant]
  3. IMIDAPRIL HYDROCHLORIDE [Concomitant]
  4. MEFRUSIDE [Concomitant]
  5. LIVER HYDROLYSATE COMBINED DRUG [Concomitant]
  6. URSODESOXYCHOLIC ACID [Concomitant]
  7. GLIMEPIRIDE [Concomitant]
  8. TAMSULOSIN HYDROCHLORIDE [Concomitant]
  9. CLOTIAZEPAM [Concomitant]
  10. SHOUSAIKOTOU [Concomitant]
  11. TORSEMIDE [Concomitant]
  12. ALLOPURINOL [Concomitant]
  13. MEDICAL DIET [Concomitant]

REACTIONS (3)
  - BRADYCARDIA [None]
  - CONDITION AGGRAVATED [None]
  - RENAL FAILURE CHRONIC [None]
